FAERS Safety Report 8852914 (Version 1)
Quarter: 2012Q4

REPORT INFORMATION
  Report Type: 
  Country: US (occurrence: US)
  Receive Date: 20121022
  Receipt Date: 20121022
  Transmission Date: 20130627
  Serious: Yes (Other)
  Sender: FDA-Public Use
  Company Number: PHEH2012US020555

PATIENT
  Age: 79 Year
  Sex: Female

DRUGS (1)
  1. TOBI [Suspect]
     Indication: BRONCHIECTASIS
     Dosage: 300 mg, BID alternate months
     Dates: start: 20120623

REACTIONS (2)
  - Vertigo positional [Recovered/Resolved]
  - Dizziness [Recovered/Resolved]
